FAERS Safety Report 6416362-X (Version None)
Quarter: 2009Q4

REPORT INFORMATION
  Report Type: 
  Country: None (occurrence: None)
  Receive Date: 20091027
  Receipt Date: 20091017
  Transmission Date: 20100525
  Serious: Yes (Death, Other)
  Sender: FDA-Public Use
  Company Number: US-NOVOPROD-292957

PATIENT
  Age: 59 Year
  Sex: Male

DRUGS (1)
  1. NOVOSEVEN RT [Suspect]
     Indication: GASTROINTESTINAL HAEMORRHAGE
     Dosage: 3 MG, SINGLE
     Route: 058
     Dates: start: 20091018, end: 20091018

REACTIONS (2)
  - DRUG DOSE OMISSION [None]
  - GASTROINTESTINAL HAEMORRHAGE [None]
